FAERS Safety Report 21887449 (Version 2)
Quarter: 2023Q1

REPORT INFORMATION
  Report Type: Spontaneous
  Country: US (occurrence: US)
  Receive Date: 20230120
  Receipt Date: 20230209
  Transmission Date: 20230417
  Serious: No
  Sender: FDA-Public Use
  Company Number: US-ALKERMES INC.-ALK-2023-000237

PATIENT
  Age: 61 Year
  Sex: Female

DRUGS (1)
  1. VIVITROL [Suspect]
     Active Substance: NALTREXONE
     Indication: Alcoholism
     Dosage: 380 MILLIGRAM, QMO
     Route: 030
     Dates: start: 20221008

REACTIONS (8)
  - Feeling abnormal [Unknown]
  - Wrong technique in product usage process [Recovered/Resolved]
  - Myalgia [Unknown]
  - Fatigue [Unknown]
  - Headache [Unknown]
  - Injection site reaction [Unknown]
  - Injection site nerve damage [Unknown]
  - Injection site discomfort [Unknown]

NARRATIVE: CASE EVENT DATE: 20230117
